FAERS Safety Report 9189743 (Version 1)
Quarter: 2013Q1

REPORT INFORMATION
  Report Type: Spontaneous
  Country: US (occurrence: US)
  Receive Date: 20130326
  Receipt Date: 20130326
  Transmission Date: 20140127
  Serious: Yes (Disabling, Other)
  Sender: FDA-Public Use
  Company Number: US-PFIZER INC-2013096369

PATIENT
  Age: 41 Year
  Sex: Female
  Weight: 116.1 kg

DRUGS (1)
  1. CELEBREX [Suspect]
     Indication: ARTHRALGIA
     Dosage: 200 MG, 1X/DAY
     Route: 048

REACTIONS (4)
  - Autoimmune disorder [Unknown]
  - Fibromyalgia [Unknown]
  - Peptic ulcer [Recovered/Resolved]
  - Pain [Not Recovered/Not Resolved]
